FAERS Safety Report 8510549-8 (Version None)
Quarter: 2012Q3

REPORT INFORMATION
  Report Type: 
  Country: None (occurrence: None)
  Receive Date: 20120716
  Receipt Date: 20120705
  Transmission Date: 20120928
  Serious: Yes (Hospitalization)
  Sender: FDA-Public Use
  Company Number: US-BIOGENIDEC-2012BI003969

PATIENT
  Age: 44 Year
  Sex: Female

DRUGS (1)
  1. TYSABRI [Suspect]
     Indication: MULTIPLE SCLEROSIS
     Route: 042
     Dates: start: 20090625, end: 20111207

REACTIONS (5)
  - URINARY TRACT INFECTION [None]
  - CHOLECYSTECTOMY [None]
  - DECUBITUS ULCER [None]
  - DEHYDRATION [None]
  - SEPSIS [None]
